FAERS Safety Report 4954109-4 (Version None)
Quarter: 2006Q1

REPORT INFORMATION
  Report Type: 
  Country: None (occurrence: None)
  Receive Date: 20060327
  Receipt Date: 20060315
  Transmission Date: 20060701
  Serious: Yes (Other)
  Sender: FDA-Public Use
  Company Number: FR-GLAXOSMITHKLINE-B0416863A

PATIENT
  Age: 48 Year
  Sex: Male

DRUGS (2)
  1. ADARTREL [Suspect]
     Indication: RESTLESS LEGS SYNDROME
     Route: 048
     Dates: start: 20050101
  2. PAROXETINE HYDROCHLORIDE [Concomitant]
     Route: 048

REACTIONS (2)
  - CYCLOTHYMIC DISORDER [None]
  - HYPOMANIA [None]
